FAERS Safety Report 6724766-0 (Version None)
Quarter: 2010Q2

REPORT INFORMATION
  Report Type: 
  Country: None (occurrence: None)
  Receive Date: 20100511
  Receipt Date: 20100504
  Transmission Date: 20101027
  Serious: Yes (Hospitalization)
  Sender: FDA-Public Use
  Company Number: 2010SP022751

PATIENT
  Age: 62 Year
  Sex: Female
  Weight: 55.7924 kg

DRUGS (9)
  1. TEMOZOLOMIDE [Suspect]
     Indication: DRUG USE FOR UNKNOWN INDICATION
     Dosage: 100 MG;PO
     Route: 048
     Dates: start: 20100405, end: 20100419
  2. DECITABINE [Suspect]
     Indication: METASTATIC MALIGNANT MELANOMA
     Dosage: 8 MG; IV
     Route: 042
     Dates: start: 20100329, end: 20100409
  3. ADVAIR DISKUS 100/50 [Concomitant]
  4. VENTOLIN [Concomitant]
  5. ZOLOFT [Concomitant]
  6. GABAPENTIN [Concomitant]
  7. ALPRAZOLAM [Concomitant]
  8. KLONOPIN [Concomitant]
  9. ALBUTEROL [Concomitant]

REACTIONS (4)
  - COLLAPSE OF LUNG [None]
  - LUNG NEOPLASM MALIGNANT [None]
  - PRODUCTIVE COUGH [None]
  - WHITE BLOOD CELL COUNT DECREASED [None]
